FAERS Safety Report 7562741-7 (Version None)
Quarter: 2011Q2

REPORT INFORMATION
  Report Type: 
  Country: None (occurrence: None)
  Receive Date: 20110615
  Receipt Date: 20110531
  Transmission Date: 20111010
  Serious: Yes (Other)
  Sender: FDA-Public Use
  Company Number: DSA_46829_2011

PATIENT
  Age: 54 Year
  Sex: Male

DRUGS (5)
  1. DAPTOMYCIN [Concomitant]
  2. ENALAPRIL MALEATE [Suspect]
     Indication: HYPERTENSION
     Dosage: (10 MG BID ORAL)
     Route: 048
     Dates: start: 20101130, end: 20101206
  3. VANCOMYCIN [Suspect]
     Indication: CATHETER SITE INFECTION
     Dosage: (1 G BID INTRAVENOUS)
     Route: 042
     Dates: start: 20101130, end: 20101206
  4. COLISTIN SULFATE [Suspect]
     Indication: CATHETER SITE INFECTION
     Dosage: (3.5 ML BID INTRAVENOUS)
     Route: 042
     Dates: start: 20101130, end: 20101206
  5. ADALAT [Concomitant]

REACTIONS (2)
  - RENAL FAILURE ACUTE [None]
  - DRUG INTERACTION [None]
